FAERS Safety Report 4499173-4 (Version None)
Quarter: 2004Q4

REPORT INFORMATION
  Report Type: 
  Country: None (occurrence: None)
  Receive Date: 20041111
  Receipt Date: 20040803
  Transmission Date: 20050328
  Serious: No
  Sender: FDA-Public Use
  Company Number: US-GLAXOSMITHKLINE-A0520745A

PATIENT
  Age: 79 Year
  Sex: Female

DRUGS (3)
  1. RELAFEN [Suspect]
     Dosage: 500MG VARIABLE DOSE
     Route: 048
     Dates: start: 20040401
  2. ZESTRIL [Concomitant]
  3. LIPITOR [Concomitant]

REACTIONS (1)
  - DRUG INEFFECTIVE [None]
